FAERS Safety Report 17139750 (Version 1)
Quarter: 2019Q4

REPORT INFORMATION
  Report Type: Spontaneous
  Country: SE (occurrence: SE)
  Receive Date: 20191211
  Receipt Date: 20191211
  Transmission Date: 20200122
  Serious: Yes (Hospitalization)
  Sender: FDA-Public Use
  Company Number: SE-TEVA-2019-SE-1148675

PATIENT
  Sex: Male

DRUGS (4)
  1. PARAFLEX [Suspect]
     Active Substance: CHLORZOXAZONE
     Dosage: 4 ST
     Route: 048
     Dates: start: 20180107, end: 20180107
  2. STESOLID [Suspect]
     Active Substance: DIAZEPAM
     Dosage: 1-2 ST
     Route: 048
     Dates: start: 20180107, end: 20180107
  3. STILNOCT [Suspect]
     Active Substance: ZOLPIDEM TARTRATE
     Dosage: 1-2 ST
     Route: 048
     Dates: start: 20180107, end: 20180107
  4. PROMETHAZINE [Suspect]
     Active Substance: PROMETHAZINE HYDROCHLORIDE
     Dosage: 150 MG
     Route: 048
     Dates: start: 20180107, end: 20180107

REACTIONS (2)
  - Depressed level of consciousness [Unknown]
  - Intentional overdose [Unknown]

NARRATIVE: CASE EVENT DATE: 20180107
